FAERS Safety Report 20437374 (Version 3)
Quarter: 2024Q3

REPORT INFORMATION
  Report Type: Report from Study
  Country: US (occurrence: US)
  Receive Date: 20220207
  Receipt Date: 20240925
  Transmission Date: 20241016
  Serious: No
  Sender: GLAXOSMITHKLINE
  Company Number: US-GLAXOSMITHKLINE-US2022AMR019670

PATIENT
  Sex: Female

DRUGS (1)
  1. NIRAPARIB [Suspect]
     Active Substance: NIRAPARIB
     Indication: Ovarian cancer
     Dosage: 200 MG
     Dates: start: 20220125

REACTIONS (5)
  - Vision blurred [Recovering/Resolving]
  - Chills [Not Recovered/Not Resolved]
  - Back pain [Recovering/Resolving]
  - Fatigue [Recovering/Resolving]
  - Decreased activity [Unknown]
